FAERS Safety Report 5092932-9 (Version None)
Quarter: 2006Q3

REPORT INFORMATION
  Report Type: 
  Country: None (occurrence: None)
  Receive Date: 20060830
  Receipt Date: 20050214
  Transmission Date: 20061208
  Serious: Yes (Hospitalization, Disabling, Other)
  Sender: FDA-Public Use
  Company Number: 2005CG00353

PATIENT
  Age: 47 Year
  Sex: Female

DRUGS (6)
  1. CRESTOR [Suspect]
     Indication: HYPERCHOLESTEROLAEMIA
     Route: 048
     Dates: start: 20030401, end: 20030101
  2. CRESTOR [Suspect]
     Route: 048
     Dates: start: 20030101, end: 20031101
  3. PULMICORT [Concomitant]
     Indication: ASTHMA
  4. LEXOMIL [Concomitant]
  5. PRETERAX [Concomitant]
     Indication: HYPERTENSION
  6. FORADIL [Concomitant]
     Indication: ASTHMA

REACTIONS (9)
  - ARTHRALGIA [None]
  - DRUG EFFECT DECREASED [None]
  - FATIGUE [None]
  - FIBROMYALGIA [None]
  - GAIT DISTURBANCE [None]
  - NAUSEA [None]
  - OVARIAN DISORDER [None]
  - PHYSICAL DISABILITY [None]
  - WEIGHT DECREASED [None]
